FAERS Safety Report 9121305 (Version 1)
Quarter: 2013Q1

REPORT INFORMATION
  Report Type: Report from Study
  Country: ES (occurrence: ES)
  Receive Date: 20130225
  Receipt Date: 20130225
  Transmission Date: 20140127
  Serious: Yes (Hospitalization)
  Sender: FDA-Public Use
  Company Number: JP-ASTRAZENECA-2013SE11884

PATIENT
  Age: 79 Year
  Sex: Female

DRUGS (6)
  1. PARAPRES PLUS [Suspect]
     Indication: HYPERTENSION
     Dosage: CANDESARTAN CILEXETIL 16 MG/HYDROCHLOROTHIAZIDE 12.5 MG (1 D)
     Route: 048
     Dates: start: 2010, end: 20120713
  2. ATENOLOL [Interacting]
     Indication: HYPERTENSION
     Route: 048
     Dates: start: 2011, end: 20120713
  3. DIGOXINA [Interacting]
     Indication: ATRIAL FIBRILLATION
     Route: 048
     Dates: start: 2010, end: 20120713
  4. ALDACTONE [Interacting]
     Indication: CARDIAC FAILURE
     Route: 048
     Dates: start: 2010, end: 20120713
  5. FUROSEMIDA [Concomitant]
     Indication: CARDIAC FAILURE
     Route: 048
     Dates: start: 2010, end: 20120713
  6. LEVOTHROID [Concomitant]
     Indication: HYPOTHYROIDISM
     Route: 048

REACTIONS (2)
  - Nodal rhythm [Recovered/Resolved]
  - Toxicity to various agents [Recovered/Resolved]
